FAERS Safety Report 20983234 (Version 1)
Quarter: 2022Q2

REPORT INFORMATION
  Report Type: Spontaneous
  Country: CA (occurrence: CA)
  Receive Date: 20220620
  Receipt Date: 20220620
  Transmission Date: 20220721
  Serious: Yes (Other)
  Sender: FDA-Public Use
  Company Number: CA-SCALL-2022-CA-001220

PATIENT
  Age: 47 Year
  Sex: Female

DRUGS (39)
  1. RABEPRAZOLE SODIUM [Suspect]
     Active Substance: RABEPRAZOLE SODIUM
     Indication: Product used for unknown indication
     Route: 048
  2. RANITIDINE [Concomitant]
     Active Substance: RANITIDINE
     Route: 065
  3. VENOFER [Concomitant]
     Active Substance: IRON SUCROSE
     Route: 065
  4. COLCHICINE [Concomitant]
     Active Substance: COLCHICINE
     Route: 065
  5. PERINDOPRIL [Concomitant]
     Active Substance: PERINDOPRIL
     Route: 065
  6. PATIROMER [Concomitant]
     Active Substance: PATIROMER
     Route: 065
  7. SACCHARATED IRON OXIDE [Concomitant]
     Active Substance: IRON SUCROSE
     Route: 065
  8. BIAXIN [Suspect]
     Active Substance: CLARITHROMYCIN
  9. CELEBREX [Suspect]
     Active Substance: CELECOXIB
  10. CEPHALEXIN [Suspect]
     Active Substance: CEPHALEXIN
  11. CIPROFLOXACIN [Suspect]
     Active Substance: CIPROFLOXACIN
  12. ARAVA [Suspect]
     Active Substance: LEFLUNOMIDE
     Route: 065
  13. CLINDAMYCIN [Suspect]
     Active Substance: CLINDAMYCIN
  14. CODEINE [Suspect]
     Active Substance: CODEINE
  15. ENALAPRIL [Suspect]
     Active Substance: ENALAPRIL
  16. ENBREL [Suspect]
     Active Substance: ETANERCEPT
  17. FOSAMAX [Suspect]
     Active Substance: ALENDRONATE SODIUM
  18. GLICLAZIDE [Suspect]
     Active Substance: GLICLAZIDE
  19. HYDRALAZINE HYDROCHLORIDE [Suspect]
     Active Substance: HYDRALAZINE HYDROCHLORIDE
  20. HYDROCHLOROTHIAZIDE [Suspect]
     Active Substance: HYDROCHLOROTHIAZIDE
  21. HYDROXYCHLOROQUINE [Suspect]
     Active Substance: HYDROXYCHLOROQUINE
  22. LEVAQUIN [Suspect]
     Active Substance: LEVOFLOXACIN
  23. ESOMEPRAZOLE [Concomitant]
     Active Substance: ESOMEPRAZOLE
     Route: 065
  24. LOSARTAN [Suspect]
     Active Substance: LOSARTAN
  25. METHOTREXATE [Suspect]
     Active Substance: METHOTREXATE
  26. METOPROLOL TARTRATE [Suspect]
     Active Substance: METOPROLOL TARTRATE
  27. MOXIFLOXACIN HYDROCHLORIDE [Suspect]
     Active Substance: MOXIFLOXACIN HYDROCHLORIDE
  28. ORENCIA [Suspect]
     Active Substance: ABATACEPT
  29. PANTOPRAZOLE MAGNESIUM [Suspect]
     Active Substance: PANTOPRAZOLE MAGNESIUM
  30. PENICILLIN G 2-AMINO-4-METHYLPYRIMIDINE [Suspect]
     Active Substance: PENICILLIN G 2-AMINO-4-METHYLPYRIMIDINE
  31. HYDROXYCHLOROQUINE SULFATE [Suspect]
     Active Substance: HYDROXYCHLOROQUINE SULFATE
  32. ISONIAZID [Suspect]
     Active Substance: ISONIAZID
  33. XELJANZ [Suspect]
     Active Substance: TOFACITINIB CITRATE
  34. GOLD [Concomitant]
     Active Substance: GOLD
     Route: 065
  35. IRON SUCROSE [Concomitant]
     Active Substance: IRON SUCROSE
     Route: 065
  36. PREDNISONE [Concomitant]
     Active Substance: PREDNISONE
     Dosage: 8.5 MG,1 D
  37. ATENOLOL [Concomitant]
     Active Substance: ATENOLOL
     Route: 065
  38. LEVOTHYROXINE [Concomitant]
     Active Substance: LEVOTHYROXINE
     Route: 065
  39. LEUCOVORIN [Suspect]
     Active Substance: LEUCOVORIN
     Route: 065

REACTIONS (23)
  - Cardiac failure congestive [Unknown]
  - Drug intolerance [Unknown]
  - Liver disorder [Unknown]
  - Drug hypersensitivity [Unknown]
  - Nausea [Unknown]
  - Malaise [Unknown]
  - Drug ineffective [Unknown]
  - Diarrhoea [Unknown]
  - Abdominal discomfort [Unknown]
  - Abdominal pain upper [Unknown]
  - Arthralgia [Unknown]
  - Cough [Unknown]
  - Rash [Unknown]
  - Headache [Unknown]
  - Off label use [Unknown]
  - Product use issue [Unknown]
  - Dyspnoea [Unknown]
  - Gastric disorder [Unknown]
  - Hepatic steatosis [Unknown]
  - Hypertension [Unknown]
  - Loss of employment [Unknown]
  - Therapeutic product effect decreased [Unknown]
  - Contraindicated product administered [Unknown]
